FAERS Safety Report 17597028 (Version 1)
Quarter: 2020Q1

REPORT INFORMATION
  Report Type: Report from Study
  Country: None (occurrence: US)
  Receive Date: 20200330
  Receipt Date: 20200330
  Transmission Date: 20200409
  Serious: Yes (Other)
  Sender: FDA-Public Use
  Company Number: US-ABBVIE-19K-163-2859673-00

PATIENT
  Age: 70 Year
  Sex: Female

DRUGS (3)
  1. HUMIRA [Suspect]
     Active Substance: ADALIMUMAB
     Indication: PSORIASIS
     Route: 058
     Dates: start: 2020
  2. HUMIRA [Suspect]
     Active Substance: ADALIMUMAB
     Indication: PSORIASIS
     Route: 058
     Dates: start: 20190617, end: 20200227
  3. OTEZLA [Suspect]
     Active Substance: APREMILAST
     Indication: PRODUCT USED FOR UNKNOWN INDICATION
     Route: 065
     Dates: end: 2019

REACTIONS (16)
  - Feeling abnormal [Unknown]
  - Chills [Recovering/Resolving]
  - Rhinorrhoea [Recovered/Resolved]
  - Urinary tract infection [Recovered/Resolved]
  - Nodule [Unknown]
  - Fatigue [Recovering/Resolving]
  - Scratch [Unknown]
  - Psoriasis [Recovered/Resolved]
  - Bone operation [Unknown]
  - Feeling cold [Unknown]
  - Irritability [Recovering/Resolving]
  - Cast removal [Unknown]
  - Arthritis [Recovered/Resolved]
  - Cystitis [Recovering/Resolving]
  - Impaired work ability [Recovering/Resolving]
  - Stress [Unknown]

NARRATIVE: CASE EVENT DATE: 2019
